FAERS Safety Report 9884976 (Version 1)
Quarter: 2014Q1

REPORT INFORMATION
  Report Type: Spontaneous
  Country: US (occurrence: US)
  Receive Date: 20140210
  Receipt Date: 20140210
  Transmission Date: 20141002
  Serious: Yes (Hospitalization)
  Sender: FDA-Public Use
  Company Number: US-JNJFOC-20140201865

PATIENT
  Sex: Male

DRUGS (2)
  1. DURAGESIC [Suspect]
     Indication: PAIN MANAGEMENT
     Route: 062
     Dates: end: 201401
  2. GENERIC FENTANYL TRANSDERMAL SYSTEM [Suspect]
     Indication: PAIN MANAGEMENT
     Route: 062
     Dates: end: 201401

REACTIONS (2)
  - Hospitalisation [Not Recovered/Not Resolved]
  - Application site reaction [Recovered/Resolved]
